FAERS Safety Report 7707162-9 (Version None)
Quarter: 2011Q3

REPORT INFORMATION
  Report Type: 
  Country: None (occurrence: None)
  Receive Date: 20110824
  Receipt Date: 20110818
  Transmission Date: 20111222
  Serious: Yes (Other)
  Sender: FDA-Public Use
  Company Number: US-B.I. PHARMACEUTICALS,INC./RIDGEFIELD-2011-BP-20354BP

PATIENT
  Sex: Male

DRUGS (1)
  1. AGGRENOX [Suspect]

REACTIONS (2)
  - NEOPLASM MALIGNANT [None]
  - DRY MOUTH [None]
